FAERS Safety Report 25954869 (Version 1)
Quarter: 2025Q4

REPORT INFORMATION
  Report Type: Spontaneous
  Country: EU (occurrence: EU)
  Receive Date: 20251024
  Receipt Date: 20251024
  Transmission Date: 20260118
  Serious: Yes (Hospitalization, Other)
  Sender: STRIDES
  Company Number: EU-STRIDES ARCOLAB LIMITED-2025SP013255

PATIENT
  Age: 72 Year
  Sex: Male

DRUGS (8)
  1. FUROSEMIDE [Suspect]
     Active Substance: FUROSEMIDE
     Indication: Hypertension
     Dosage: 40 MILLIGRAM, QD
     Route: 065
     Dates: start: 2023, end: 2023
  2. SERTRALINE [Suspect]
     Active Substance: SERTRALINE HYDROCHLORIDE
     Indication: Major depression
     Dosage: 50 MILLIGRAM, QD
     Route: 065
     Dates: start: 2023, end: 2024
  3. HYDROXYZINE HYDROCHLORIDE [Suspect]
     Active Substance: HYDROXYZINE HYDROCHLORIDE
     Indication: Major depression
     Dosage: UNK
     Route: 065
  4. APIXABAN [Suspect]
     Active Substance: APIXABAN
     Indication: Atrial fibrillation
     Dosage: 10 MILLIGRAM, QD
     Route: 065
     Dates: start: 2023
  5. LANSOPRAZOLE [Suspect]
     Active Substance: LANSOPRAZOLE
     Indication: Product used for unknown indication
     Dosage: 30 MILLIGRAM, QD
     Route: 065
     Dates: start: 2023, end: 2024
  6. AMIODARONE [Suspect]
     Active Substance: AMIODARONE
     Indication: Atrial fibrillation
     Dosage: 200 MILLIGRAM, QD
     Route: 065
     Dates: start: 2023
  7. BUDESONIDE\FORMOTEROL [Suspect]
     Active Substance: BUDESONIDE\FORMOTEROL
     Indication: Chronic obstructive pulmonary disease
     Dosage: UNK UNK, QD
     Route: 065
     Dates: start: 2023
  8. PAROXETINE [Concomitant]
     Active Substance: PAROXETINE
     Indication: Major depression
     Dosage: UNK
     Route: 065

REACTIONS (5)
  - Suicide attempt [Unknown]
  - Agranulocytosis [Recovered/Resolved]
  - Toxicity to various agents [Unknown]
  - Treatment noncompliance [Unknown]
  - Off label use [Unknown]

NARRATIVE: CASE EVENT DATE: 20230101
